FAERS Safety Report 7200837-X (Version None)
Quarter: 2010Q4

REPORT INFORMATION
  Report Type: 
  Country: None (occurrence: None)
  Receive Date: 20101228
  Receipt Date: 20101217
  Transmission Date: 20110411
  Serious: Yes (Other)
  Sender: FDA-Public Use
  Company Number: JP-PFIZER INC-2010175130

PATIENT
  Age: 48 Year
  Sex: Female

DRUGS (4)
  1. LYRICA [Suspect]
     Indication: RADICULAR PAIN
     Dosage: 150MG/DAY
     Route: 048
     Dates: start: 20101124, end: 20100101
  2. LYRICA [Suspect]
     Dosage: 225MG/DAY
     Route: 048
     Dates: start: 20101210, end: 20101201
  3. METHYCOBAL [Concomitant]
     Dosage: UNK
     Dates: start: 20101124
  4. MERCAZOLE [Concomitant]
     Indication: THYROID FUNCTION TEST ABNORMAL

REACTIONS (1)
  - HEPATIC FUNCTION ABNORMAL [None]
